FAERS Safety Report 15210134 (Version 1)
Quarter: 2018Q3

REPORT INFORMATION
  Report Type: Spontaneous
  Country: US (occurrence: US)
  Receive Date: 20180727
  Receipt Date: 20180727
  Transmission Date: 20181010
  Serious: Yes (Other)
  Sender: FDA-Public Use
  Company Number: US-MYLANLABS-2018M1055579

PATIENT
  Age: 66 Year
  Sex: Male

DRUGS (5)
  1. WARFARIN [Suspect]
     Active Substance: WARFARIN
     Indication: PULMONARY EMBOLISM
     Dosage: 40 MG, QW
     Route: 065
  2. WARFARIN [Suspect]
     Active Substance: WARFARIN
     Dosage: 20 MG, QW
     Route: 065
  3. SALSALATE. [Interacting]
     Active Substance: SALSALATE
     Indication: BACK PAIN
     Dosage: 1.5 G, BID
     Route: 065
     Dates: start: 201604
  4. SALSALATE. [Interacting]
     Active Substance: SALSALATE
     Indication: ARTHRALGIA
  5. DOXYCYCLINE. [Concomitant]
     Active Substance: DOXYCYCLINE
     Indication: COUGH
     Dosage: 100 MG
     Route: 065

REACTIONS (3)
  - Drug interaction [Recovered/Resolved]
  - International normalised ratio increased [Recovered/Resolved]
  - Contusion [Recovered/Resolved]
